FAERS Safety Report 4426343-3 (Version None)
Quarter: 2004Q3

REPORT INFORMATION
  Report Type: 
  Country: None (occurrence: None)
  Receive Date: 20040810
  Receipt Date: 20040727
  Transmission Date: 20050211
  Serious: Yes (Hospitalization)
  Sender: FDA-Public Use
  Company Number: 02100-JPN-04-0169

PATIENT
  Age: 83 Year
  Sex: Female

DRUGS (6)
  1. CILOSTAZOL [Suspect]
     Indication: ATHEROSCLEROSIS OBLITERANS
     Dosage: 100 MG ORAL
     Route: 048
     Dates: start: 20040531, end: 20040602
  2. INSULIN (GENETICAL RECOMBINATION) [Concomitant]
  3. GLIBENCLAMIDE [Concomitant]
  4. VALSARTAN [Concomitant]
  5. TRICHLORMETHIAZIDE [Concomitant]
  6. MAGNESIUM OXIDE [Concomitant]

REACTIONS (7)
  - ANGINA PECTORIS [None]
  - ARRHYTHMIA [None]
  - ELECTROCARDIOGRAM QT PROLONGED [None]
  - ELECTROCARDIOGRAM T WAVE ABNORMAL [None]
  - MOBILITY DECREASED [None]
  - PALPITATIONS [None]
  - TACHYCARDIA PAROXYSMAL [None]
